FAERS Safety Report 8866219 (Version 2)
Quarter: 2013Q2

REPORT INFORMATION
  Report Type: Spontaneous
  Country: US (occurrence: US)
  Receive Date: 20121025
  Receipt Date: 20130403
  Transmission Date: 20140414
  Serious: Yes (Disabling, Other)
  Sender: FDA-Public Use
  Company Number: US-PFIZER INC-2012266095

PATIENT
  Age: 31 Year
  Sex: Female
  Weight: 79.82 kg

DRUGS (5)
  1. DILANTIN [Suspect]
     Indication: CONVULSION
     Dosage: 3CAPSULES OF 100MG 1X/DAY EVERY OTHER DAY ALTERNATING WITH 4CAPSULES OF 100MG 1X/DAY EVERY OTHER DAY
     Route: 048
  2. CLONAZEPAM [Concomitant]
     Dosage: UNK
  3. PROMETHAZINE [Concomitant]
     Dosage: UNK
  4. LEVETIRACETAM [Concomitant]
     Dosage: UNK
  5. DIAZEPAM [Concomitant]
     Dosage: UNK

REACTIONS (1)
  - Convulsion [Not Recovered/Not Resolved]
